FAERS Safety Report 6299987-4 (Version None)
Quarter: 2009Q3

REPORT INFORMATION
  Report Type: 
  Country: None (occurrence: None)
  Receive Date: 20090806
  Receipt Date: 20090727
  Transmission Date: 20100115
  Serious: Yes (Hospitalization)
  Sender: FDA-Public Use
  Company Number: US-ELI_LILLY_AND_COMPANY-US200906003719

PATIENT
  Sex: Female
  Weight: 58.05 kg

DRUGS (8)
  1. FORTEO [Suspect]
     Indication: OSTEOPOROSIS
     Dosage: 20 UG, DAILY (1/D)
     Dates: end: 20090601
  2. FORTEO [Suspect]
     Dosage: 20 UG, DAILY (1/D)
  3. SYMBICORT [Concomitant]
  4. LEVOXYL [Concomitant]
  5. MULTI-VITAMIN [Concomitant]
  6. DARVOCET-N 100 [Concomitant]
     Dosage: 100 MG, UNK
  7. ASPIRIN [Concomitant]
  8. CALCIUM + VITAMIN D [Concomitant]

REACTIONS (2)
  - MUSCLE SPASMS [None]
  - NON-CARDIAC CHEST PAIN [None]
